FAERS Safety Report 8612274-1 (Version None)
Quarter: 2012Q3

REPORT INFORMATION
  Report Type: 
  Country: None (occurrence: None)
  Receive Date: 20120822
  Receipt Date: 20120817
  Transmission Date: 20120928
  Serious: Yes (Hospitalization, Other)
  Sender: FDA-Public Use
  Company Number: US-ACTELION-A-US2012-68870

PATIENT
  Age: 66 Year
  Sex: Male

DRUGS (4)
  1. SILDENAFIL [Concomitant]
  2. TRACLEER [Suspect]
     Indication: PULMONARY ARTERIAL HYPERTENSION
     Dosage: UNK
     Route: 048
  3. VENTAVIS [Suspect]
     Indication: PULMONARY ARTERIAL HYPERTENSION
     Dosage: UNK
     Route: 055
  4. COUMADIN [Concomitant]

REACTIONS (10)
  - WALKING AID USER [None]
  - SKELETAL INJURY [None]
  - CYST [None]
  - AMPUTATION [None]
  - PULMONARY EMBOLISM [None]
  - FALL [None]
  - RENAL DISORDER [None]
  - LIVER DISORDER [None]
  - TRANSFUSION [None]
  - MUSCULOSKELETAL DISCOMFORT [None]
